FAERS Safety Report 22938752 (Version 3)
Quarter: 2024Q3

REPORT INFORMATION
  Report Type: Report from Study
  Country: GB (occurrence: GB)
  Receive Date: 20230913
  Receipt Date: 20240917
  Transmission Date: 20241017
  Serious: Yes (Hospitalization, Other)
  Sender: SANDOZ
  Company Number: GB-SANDOZ-SDZ2023GB013016

PATIENT
  Age: 60 Year
  Sex: Female

DRUGS (3)
  1. HYRIMOZ [Suspect]
     Active Substance: ADALIMUMAB-ADAZ
     Dosage: 40 MG, Q2W (EOW)
     Route: 058
  2. HYRIMOZ [Suspect]
     Active Substance: ADALIMUMAB-ADAZ
     Dosage: 40 MG, Q2W (EOW), HYRIMOZ 40MG/0.4ML
     Route: 058
  3. HYRIMOZ [Suspect]
     Active Substance: ADALIMUMAB-ADAZ
     Indication: Colitis ulcerative
     Dosage: 40 MG, Q2W (EOW), HYRIMOZ 40MG/0.8ML
     Route: 058
     Dates: start: 20230808

REACTIONS (10)
  - Foot operation [Unknown]
  - Colitis [Recovering/Resolving]
  - Mouth ulceration [Unknown]
  - Headache [Unknown]
  - Eye infection [Unknown]
  - Product administration error [Unknown]
  - Drug dose omission by device [Unknown]
  - Device use error [Unknown]
  - Wrong technique in device usage process [Unknown]
  - Incorrect dose administered [Unknown]

NARRATIVE: CASE EVENT DATE: 20240708
